FAERS Safety Report 17883796 (Version 2)
Quarter: 2020Q3

REPORT INFORMATION
  Report Type: Spontaneous
  Country: SI (occurrence: SI)
  Receive Date: 20200611
  Receipt Date: 20200811
  Transmission Date: 20201103
  Serious: Yes (Other)
  Sender: FDA-Public Use
  Company Number: SI-BIOGEN-2020BI00882334

PATIENT
  Age: 18 Year
  Sex: Male

DRUGS (1)
  1. TYSABRI [Suspect]
     Active Substance: NATALIZUMAB
     Indication: PRODUCT USED FOR UNKNOWN INDICATION
     Route: 065
     Dates: start: 20190718, end: 20200512

REACTIONS (5)
  - Weight decreased [Unknown]
  - Vomiting [Unknown]
  - Abdominal pain [Unknown]
  - B-cell lymphoma [Unknown]
  - Nausea [Unknown]

NARRATIVE: CASE EVENT DATE: 202005
